FAERS Safety Report 6197950-5 (Version None)
Quarter: 2009Q2

REPORT INFORMATION
  Report Type: 
  Country: None (occurrence: None)
  Receive Date: 20090521
  Receipt Date: 20090515
  Transmission Date: 20091009
  Serious: Yes (Hospitalization)
  Sender: FDA-Public Use
  Company Number: B0570105A

PATIENT
  Sex: Female

DRUGS (7)
  1. PAXIL [Suspect]
     Indication: OBSESSIVE-COMPULSIVE DISORDER
     Dosage: 20MG PER DAY
     Route: 048
     Dates: start: 20071228, end: 20080117
  2. PAXIL [Suspect]
     Dosage: 30MG PER DAY
     Route: 048
     Dates: start: 20080118, end: 20080201
  3. ALCOHOL [Suspect]
  4. LUVOX [Concomitant]
     Indication: OBSESSIVE-COMPULSIVE DISORDER
     Route: 048
  5. DIAZEPAM [Concomitant]
     Indication: OBSESSIVE-COMPULSIVE DISORDER
     Route: 048
  6. BUP-4 [Concomitant]
     Indication: DYSURIA
     Route: 048
  7. CYANAMIDE [Concomitant]
     Indication: ALCOHOLISM
     Route: 048

REACTIONS (4)
  - CEREBRAL ATAXIA [None]
  - DIZZINESS [None]
  - MEMORY IMPAIRMENT [None]
  - TREMOR [None]
